FAERS Safety Report 18179073 (Version 1)
Quarter: 2020Q3

REPORT INFORMATION
  Report Type: Spontaneous
  Country: DE (occurrence: DE)
  Receive Date: 20200821
  Receipt Date: 20200821
  Transmission Date: 20201103
  Serious: Yes (Hospitalization)
  Sender: FDA-Public Use
  Company Number: DE-TEVA-2020-DE-1815999

PATIENT
  Age: 23 Year
  Sex: Male

DRUGS (3)
  1. ORTOTON (METHOCARBAMOL) [Suspect]
     Active Substance: METHOCARBAMOL
     Dosage: 2250 MILLIGRAM DAILY; 1?1?1?0
     Route: 065
  2. IBUPROFEN. [Suspect]
     Active Substance: IBUPROFEN
     Dosage: 1200 MILLIGRAM DAILY;  1?0?1?0
     Route: 065
  3. TAVOR (LORAZEPAM) [Suspect]
     Active Substance: LORAZEPAM
     Route: 065

REACTIONS (7)
  - Headache [Unknown]
  - Paraesthesia [Unknown]
  - Nausea [Unknown]
  - Migraine [Unknown]
  - Photophobia [Unknown]
  - Visual impairment [Unknown]
  - Phonophobia [Unknown]
